FAERS Safety Report 25557097 (Version 1)
Quarter: 2025Q3

REPORT INFORMATION
  Report Type: Spontaneous
  Country: US (occurrence: US)
  Receive Date: 20250715
  Receipt Date: 20250715
  Transmission Date: 20251021
  Serious: No
  Sender: NOVO NORDISK
  Company Number: US-NOVOPROD-1276459

PATIENT

DRUGS (1)
  1. OZEMPIC [Suspect]
     Active Substance: SEMAGLUTIDE
     Indication: Product used for unknown indication
     Dosage: 0.25MG ONCE WEEKLY
     Route: 058

REACTIONS (4)
  - Taste disorder [Unknown]
  - Abdominal pain [Unknown]
  - Eructation [Unknown]
  - Flatulence [Unknown]
